FAERS Safety Report 20097368 (Version 1)
Quarter: 2021Q4

REPORT INFORMATION
  Report Type: Spontaneous
  Country: US (occurrence: None)
  Receive Date: 20211120
  Receipt Date: 20211120
  Transmission Date: 20220303
  Serious: Yes (Life-Threatening, Hospitalization)
  Sender: FDA-Public Use
  Company Number: None

PATIENT
  Age: 46 Year
  Sex: Female
  Weight: 102.4 kg

DRUGS (10)
  1. METOCLOPRAMIDE [Suspect]
     Active Substance: METOCLOPRAMIDE
     Indication: Nausea
     Dosage: FREQUENCY : ONCE;?
     Route: 040
     Dates: start: 20211104, end: 20211104
  2. METOCLOPRAMIDE [Suspect]
     Active Substance: METOCLOPRAMIDE
     Indication: Vomiting
  3. ONDANSETRON [Concomitant]
     Active Substance: ONDANSETRON
     Dates: start: 20211104, end: 20211104
  4. CEFTRIAXONE [Concomitant]
     Active Substance: CEFTRIAXONE
     Dates: start: 20211104, end: 20211104
  5. CONRAY [Concomitant]
     Active Substance: IOTHALAMATE MEGLUMINE
     Dates: start: 20211104, end: 20211104
  6. PROPOFOL [Concomitant]
     Active Substance: PROPOFOL
     Dates: start: 20211104, end: 20211104
  7. OXYCODONE [Concomitant]
     Active Substance: OXYCODONE
     Dates: start: 20211103, end: 20211104
  8. HYDROMORPHONE [Concomitant]
     Active Substance: HYDROMORPHONE
     Dates: start: 20211103, end: 20211104
  9. TUMS [Concomitant]
     Active Substance: CALCIUM CARBONATE
     Dates: start: 20211103, end: 20211103
  10. ACETAMINOPHEN [Concomitant]
     Active Substance: ACETAMINOPHEN
     Dates: start: 20211103, end: 20211104

REACTIONS (9)
  - Chills [None]
  - Tremor [None]
  - Muscle rigidity [None]
  - Unresponsive to stimuli [None]
  - Agonal respiration [None]
  - Hypotension [None]
  - Tachycardia [None]
  - Neuroleptic malignant syndrome [None]
  - Drug hypersensitivity [None]

NARRATIVE: CASE EVENT DATE: 20211104
